FAERS Safety Report 13369810 (Version 2)
Quarter: 2017Q2

REPORT INFORMATION
  Report Type: Spontaneous
  Country: US (occurrence: US)
  Receive Date: 20170324
  Receipt Date: 20170505
  Transmission Date: 20170830
  Serious: No
  Sender: FDA-Public Use
  Company Number: US-MATRIXX INITIATIVES, INC.-1064620

PATIENT
  Age: 55 Year
  Sex: Female
  Weight: 55.91 kg

DRUGS (1)
  1. ZICAM COLD REMEDY RAPIDMELTS [Suspect]
     Active Substance: HOMEOPATHICS\ZINC ACETATE ANHYDROUS\ZINC GLUCONATE
     Indication: VIRAL UPPER RESPIRATORY TRACT INFECTION
     Route: 048
     Dates: start: 20170322, end: 20170322

REACTIONS (1)
  - Ageusia [Recovered/Resolved]
